FAERS Safety Report 12450913 (Version 1)
Quarter: 2016Q2

REPORT INFORMATION
  Report Type: Spontaneous
  Country: US (occurrence: US)
  Receive Date: 20160609
  Receipt Date: 20160609
  Transmission Date: 20160815
  Serious: No
  Sender: FDA-Public Use
  Company Number: US-APOTEX-2016AP006409

PATIENT
  Age: 27 Year
  Sex: Male

DRUGS (6)
  1. PREDNISONE. [Concomitant]
     Active Substance: PREDNISONE
     Indication: GRAFT VERSUS HOST DISEASE IN SKIN
     Dosage: TAPERED OFF OVER COURSE OF 6 MONTHS
     Route: 065
  2. CYCLOSPORINE. [Suspect]
     Active Substance: CYCLOSPORINE
     Indication: GRAFT VERSUS HOST DISEASE IN SKIN
     Dosage: 10 MG/KG DAILY; TAPERED OFF OVER THE COURSE OF NINE MONTHS
     Route: 065
  3. POSACONAZOLE [Concomitant]
     Active Substance: POSACONAZOLE
     Indication: PROPHYLAXIS
     Dosage: UNK, UNKNOWN
     Route: 065
  4. CLOBETASOL 0.05% [Concomitant]
     Active Substance: CLOBETASOL
     Indication: GRAFT VERSUS HOST DISEASE IN SKIN
     Route: 061
  5. MYCOPHENOLATE MOFETIL. [Concomitant]
     Active Substance: MYCOPHENOLATE MOFETIL
     Indication: GRAFT VERSUS HOST DISEASE IN SKIN
     Dosage: 2 GRAMS/DAY TAPERED OFF OVER THE COURSE OF NINE MONTHS
     Route: 065
  6. ACICLOVIR [Concomitant]
     Active Substance: ACYCLOVIR
     Indication: PROPHYLAXIS
     Dosage: UNK, UNKNOWN
     Route: 065

REACTIONS (5)
  - Skin hypopigmentation [Unknown]
  - Alopecia [Unknown]
  - Blood alkaline phosphatase increased [Unknown]
  - Transaminases increased [Unknown]
  - Sebaceous hyperplasia [Unknown]
